FAERS Safety Report 24449825 (Version 3)
Quarter: 2024Q4

REPORT INFORMATION
  Report Type: Spontaneous
  Country: US (occurrence: US)
  Receive Date: 20241017
  Receipt Date: 20241219
  Transmission Date: 20250115
  Serious: Yes (Other)
  Sender: PFIZER
  Company Number: US-PFIZER INC-PV202300058330

PATIENT
  Age: 76 Year
  Sex: Male

DRUGS (7)
  1. BOSULIF [Suspect]
     Active Substance: BOSUTINIB MONOHYDRATE
     Indication: Chronic myeloid leukaemia
     Dosage: 300 MG, DAILY
     Route: 048
     Dates: start: 202007
  2. BOSULIF [Suspect]
     Active Substance: BOSUTINIB MONOHYDRATE
     Dosage: 400 MG, DAILY
     Dates: start: 20200827
  3. BOSULIF [Suspect]
     Active Substance: BOSUTINIB MONOHYDRATE
     Dosage: UNK
     Dates: end: 20210204
  4. BOSULIF [Suspect]
     Active Substance: BOSUTINIB MONOHYDRATE
     Dosage: 400 MG
     Dates: start: 20210215
  5. BOSULIF [Suspect]
     Active Substance: BOSUTINIB MONOHYDRATE
     Dosage: 300 MG, DAILY
     Route: 048
     Dates: start: 20220321
  6. NORVASC [Concomitant]
     Active Substance: AMLODIPINE BESYLATE
     Dosage: 0.5 DF, 2X/DAY (TAKE 1/2 TABLET TWICE A DAY BY MOUTH)
     Route: 048
  7. SPRYCEL [Concomitant]
     Active Substance: DASATINIB
     Dosage: 70 MG, DAILY

REACTIONS (18)
  - Renal failure [Unknown]
  - Philadelphia chromosome positive [Unknown]
  - Anaemia [Unknown]
  - White blood cell count increased [Unknown]
  - Blood creatinine increased [Recovering/Resolving]
  - Haemoglobin decreased [Unknown]
  - Haematocrit decreased [Unknown]
  - Red cell distribution width increased [Unknown]
  - Platelet count decreased [Unknown]
  - Monocyte count increased [Unknown]
  - Eosinophil count increased [Unknown]
  - Blood erythropoietin increased [Unknown]
  - Serum ferritin decreased [Unknown]
  - Blood iron decreased [Unknown]
  - Carbon dioxide decreased [Unknown]
  - Blood chloride increased [Unknown]
  - Blood potassium increased [Unknown]
  - Blood urea increased [Unknown]

NARRATIVE: CASE EVENT DATE: 20210204
